FAERS Safety Report 14576736 (Version 2)
Quarter: 2018Q1

REPORT INFORMATION
  Report Type: Report from Study
  Country: US (occurrence: US)
  Receive Date: 20180227
  Receipt Date: 20180313
  Transmission Date: 20180509
  Serious: Yes (Other)
  Sender: FDA-Public Use
  Company Number: US-ASTELLAS-2018US003567

PATIENT
  Age: 84 Year
  Sex: Male

DRUGS (1)
  1. ENZALUTAMIDE [Suspect]
     Active Substance: ENZALUTAMIDE
     Indication: PROSTATE CANCER
     Route: 048
     Dates: start: 20171110

REACTIONS (2)
  - Dyspnoea [Not Recovered/Not Resolved]
  - Echocardiogram abnormal [Unknown]

NARRATIVE: CASE EVENT DATE: 201711
